FAERS Safety Report 5702877-6 (Version None)
Quarter: 2008Q2

REPORT INFORMATION
  Report Type: 
  Country: None (occurrence: None)
  Receive Date: 20080411
  Receipt Date: 20080407
  Transmission Date: 20081010
  Serious: Yes (Life-Threatening, Hospitalization)
  Sender: FDA-Public Use
  Company Number: CH-MERCK-0804CHE00007

PATIENT
  Age: 60 Year
  Sex: Female
  Weight: 86 kg

DRUGS (8)
  1. JANUVIA [Suspect]
     Indication: DIABETES MELLITUS
     Route: 048
     Dates: start: 20071227, end: 20080218
  2. JANUVIA [Suspect]
     Route: 048
     Dates: start: 20080219, end: 20080325
  3. AZATHIOPRINE [Suspect]
     Indication: MALIGNANT HISTIOCYTOSIS
     Route: 048
     Dates: start: 20080129, end: 20080325
  4. METOPROLOL SUCCINATE [Concomitant]
     Indication: ATRIAL FIBRILLATION
     Route: 048
     Dates: start: 20070320, end: 20080325
  5. DIGOXIN [Concomitant]
     Indication: ATRIAL FIBRILLATION
     Route: 048
     Dates: start: 20070126, end: 20080325
  6. TORSEMIDE [Concomitant]
     Indication: OEDEMA
     Route: 048
     Dates: start: 20070305, end: 20080325
  7. DICLOFENAC SODIUM [Concomitant]
     Indication: SCIATICA
     Route: 030
     Dates: start: 20080218, end: 20080219
  8. ALPRAZOLAM [Concomitant]
     Route: 048

REACTIONS (3)
  - AGRANULOCYTOSIS [None]
  - DIARRHOEA [None]
  - PYREXIA [None]
